FAERS Safety Report 17406992 (Version 1)
Quarter: 2020Q1

REPORT INFORMATION
  Report Type: Spontaneous
  Country: US (occurrence: US)
  Receive Date: 20200211
  Receipt Date: 20200211
  Transmission Date: 20200409
  Serious: Yes (Disabling)
  Sender: FDA-Public Use
  Company Number: None

PATIENT
  Age: 36 Year
  Sex: Female
  Weight: 86.4 kg

DRUGS (5)
  1. MAGNESIUM 200 MG [Concomitant]
  2. B 12 100 MG [Concomitant]
  3. FISH OIL [Concomitant]
     Active Substance: FISH OIL
  4. DEXTROAMPHET SACCHARAT, AMPHET ASPARTATE, DEXTROAMPHET SULFATE AND AMPHET SULFAT [Suspect]
     Active Substance: AMPHETAMINE ASPARTATE\AMPHETAMINE SULFATE\DEXTROAMPHETAMINE SACCHARATE\DEXTROAMPHETAMINE SULFATE
     Indication: ATTENTION DEFICIT/HYPERACTIVITY DISORDER
     Dosage: ?          QUANTITY:30 TABLET(S);?
     Route: 048
     Dates: start: 20191215, end: 20200108
  5. XANAX 2 MG (GENERIC) [Concomitant]

REACTIONS (9)
  - Peripheral vascular disorder [None]
  - Menstruation irregular [None]
  - Skin discolouration [None]
  - Hypoaesthesia [None]
  - Heart rate irregular [None]
  - Paranoia [None]
  - Product substitution issue [None]
  - Vision blurred [None]
  - Feeling abnormal [None]

NARRATIVE: CASE EVENT DATE: 20191215
